FAERS Safety Report 8260071-1 (Version None)
Quarter: 2012Q2

REPORT INFORMATION
  Report Type: 
  Country: None (occurrence: None)
  Receive Date: 20120404
  Receipt Date: 20120322
  Transmission Date: 20120825
  Serious: Yes (Other)
  Sender: FDA-Public Use
  Company Number: CHPA2012US004893

PATIENT
  Age: 34 Year
  Sex: Female

DRUGS (3)
  1. EXCEDRIN (MIGRAINE) [Suspect]
     Indication: MIGRAINE
     Dosage: 1 DF, QD
     Route: 048
     Dates: start: 20110401, end: 20120101
  2. TRAMADOL HCL [Concomitant]
     Indication: PAIN
     Dosage: 50 MG, BID
     Dates: start: 20111209, end: 20111201
  3. MULTI-VITAMINS [Concomitant]

REACTIONS (3)
  - UNDERDOSE [None]
  - RASH [None]
  - DIABETES MELLITUS [None]
